FAERS Safety Report 7845150-2 (Version None)
Quarter: 2011Q4

REPORT INFORMATION
  Report Type: 
  Country: None (occurrence: None)
  Receive Date: 20111025
  Receipt Date: 20111020
  Transmission Date: 20120403
  Serious: Yes (Hospitalization)
  Sender: FDA-Public Use
  Company Number: CHPA2011JP14671

PATIENT

DRUGS (2)
  1. BARIUM [Suspect]
     Dosage: UNK, UNK
     Route: 048
  2. PURSENNID [Suspect]
     Indication: CONSTIPATION
     Dosage: UNK, UNK
     Route: 048

REACTIONS (2)
  - HEADACHE [None]
  - ABDOMINAL PAIN [None]
